FAERS Safety Report 22937421 (Version 2)
Quarter: 2024Q4

REPORT INFORMATION
  Report Type: Spontaneous
  Country: GB (occurrence: GB)
  Receive Date: 20230913
  Receipt Date: 20241014
  Transmission Date: 20250114
  Serious: Yes (Death, Hospitalization, Other)
  Sender: SANDOZ
  Company Number: GB-002147023-NVSC2022GB303465

PATIENT
  Age: 59 Year
  Sex: Male
  Weight: 62 kg

DRUGS (211)
  1. ARIPIPRAZOLE [Suspect]
     Active Substance: ARIPIPRAZOLE
     Indication: Schizophrenia
     Dosage: 5 MG
     Route: 065
  2. ARIPIPRAZOLE [Suspect]
     Active Substance: ARIPIPRAZOLE
     Dosage: 5 MG
     Route: 065
  3. ARIPIPRAZOLE [Suspect]
     Active Substance: ARIPIPRAZOLE
     Dosage: 5 MG
     Route: 065
  4. ARIPIPRAZOLE [Suspect]
     Active Substance: ARIPIPRAZOLE
     Dosage: 5 MG
     Route: 065
  5. ARIPIPRAZOLE [Suspect]
     Active Substance: ARIPIPRAZOLE
     Dosage: 5 MG
     Route: 065
  6. CLOZARIL [Suspect]
     Active Substance: CLOZAPINE
     Dosage: 1 DOSAGE FORM, QD
     Route: 048
  7. CLOZARIL [Suspect]
     Active Substance: CLOZAPINE
     Dosage: 1 DOSAGE FORM, QD (PM)
     Route: 065
     Dates: start: 2011
  8. CLOZARIL [Suspect]
     Active Substance: CLOZAPINE
     Dosage: 100 MG, QD
     Route: 065
     Dates: start: 20200521
  9. CLOZARIL [Suspect]
     Active Substance: CLOZAPINE
     Dosage: 100 MG, QD (AM)
     Route: 065
  10. CLOZARIL [Suspect]
     Active Substance: CLOZAPINE
     Dosage: 100 MG
     Route: 065
  11. CLOZARIL [Suspect]
     Active Substance: CLOZAPINE
     Dosage: 200 MG, BID
     Route: 048
     Dates: start: 20191209, end: 20191223
  12. CLOZARIL [Suspect]
     Active Substance: CLOZAPINE
     Dosage: 200 MG, BID
     Route: 048
     Dates: start: 20191209
  13. CLOZARIL [Suspect]
     Active Substance: CLOZAPINE
     Dosage: 245 MG, QD
     Route: 048
     Dates: start: 20191209, end: 20191223
  14. CLOZARIL [Suspect]
     Active Substance: CLOZAPINE
     Dosage: 245 MG, QD
     Route: 048
     Dates: start: 20200521
  15. CLOZARIL [Suspect]
     Active Substance: CLOZAPINE
     Dosage: 245 MG, QD (AM)
     Route: 065
     Dates: start: 2011
  16. CLOZARIL [Suspect]
     Active Substance: CLOZAPINE
     Dosage: 245 MG
     Route: 048
     Dates: start: 20100823, end: 20200823
  17. CLOZARIL [Suspect]
     Active Substance: CLOZAPINE
     Dosage: 245 MG
     Route: 048
     Dates: start: 20191207
  18. CLOZARIL [Suspect]
     Active Substance: CLOZAPINE
     Dosage: 245 MG
     Route: 048
     Dates: start: 20200521
  19. CLOZARIL [Suspect]
     Active Substance: CLOZAPINE
     Indication: Schizophrenia
     Dosage: 275 MG, QD
     Route: 048
     Dates: start: 20200521
  20. CLOZARIL [Suspect]
     Active Substance: CLOZAPINE
     Dosage: 275 MG, QD
     Route: 048
     Dates: start: 20200521, end: 2020
  21. CLOZARIL [Suspect]
     Active Substance: CLOZAPINE
     Dosage: 275 MG, QD
     Route: 048
  22. CLOZARIL [Suspect]
     Active Substance: CLOZAPINE
     Dosage: 275 MG, QD (PM)
     Route: 065
     Dates: start: 20200521
  23. CLOZARIL [Suspect]
     Active Substance: CLOZAPINE
     Dosage: 275 MG, QD (PM)
     Route: 065
  24. CLOZARIL [Suspect]
     Active Substance: CLOZAPINE
     Dosage: 300 MG, QD (PM)
     Route: 048
     Dates: start: 20100823
  25. CLOZARIL [Suspect]
     Active Substance: CLOZAPINE
     Dosage: 300 MG, QD (PM)
     Route: 065
  26. CLOZARIL [Suspect]
     Active Substance: CLOZAPINE
     Dosage: 300 MG, QD (PM)
     Route: 065
  27. CLOZARIL [Suspect]
     Active Substance: CLOZAPINE
     Dosage: 400 MG, QD
     Route: 048
     Dates: start: 20100823
  28. CLOZARIL [Suspect]
     Active Substance: CLOZAPINE
     Dosage: 400 MG, QD
     Route: 048
     Dates: start: 20191223, end: 20191223
  29. CLOZARIL [Suspect]
     Active Substance: CLOZAPINE
     Dosage: 400 MG, QD
     Route: 048
     Dates: start: 20191223, end: 20191223
  30. CLOZARIL [Suspect]
     Active Substance: CLOZAPINE
     Dosage: 400 MG, QD
     Route: 048
     Dates: start: 20201207
  31. CLOZARIL [Suspect]
     Active Substance: CLOZAPINE
     Dosage: 400 MG, QD
     Route: 048
     Dates: end: 20191223
  32. CLOZARIL [Suspect]
     Active Substance: CLOZAPINE
     Dosage: 400 MG, QD (200 MG, BID)
     Route: 048
  33. CLOZARIL [Suspect]
     Active Substance: CLOZAPINE
     Dosage: 400 MG, QD 200 MG, BID
     Route: 048
     Dates: start: 20191209, end: 20191223
  34. CLOZARIL [Suspect]
     Active Substance: CLOZAPINE
     Dosage: 50 MG, QD
     Route: 048
     Dates: start: 20191209, end: 20191223
  35. CLOZARIL [Suspect]
     Active Substance: CLOZAPINE
     Dosage: 50 MG, QD
     Route: 048
     Dates: start: 20191209, end: 20191223
  36. CLOZARIL [Suspect]
     Active Substance: CLOZAPINE
     Dosage: 50 MG, QD (MIDDAY)
     Route: 065
  37. CLOZARIL [Suspect]
     Active Substance: CLOZAPINE
     Dosage: 50 MG, QD, MIDDAY
     Route: 065
  38. CLOZARIL [Suspect]
     Active Substance: CLOZAPINE
     Dosage: 6000 MG
     Route: 048
     Dates: start: 20191209, end: 20191223
  39. CLOZARIL [Suspect]
     Active Substance: CLOZAPINE
     Dosage: 6000 MG
     Route: 048
     Dates: start: 20200521
  40. CLOZARIL [Suspect]
     Active Substance: CLOZAPINE
     Dosage: 6000 MG
     Route: 048
     Dates: start: 20200521
  41. CLOZARIL [Suspect]
     Active Substance: CLOZAPINE
     Dosage: 6000 MG
     Route: 065
     Dates: start: 20100823, end: 20100823
  42. CLOZARIL [Suspect]
     Active Substance: CLOZAPINE
     Dosage: 6000 MG
     Route: 065
  43. CLOZARIL [Suspect]
     Active Substance: CLOZAPINE
     Dosage: 800 MG, QD
     Route: 048
     Dates: start: 20201207
  44. CLOZARIL [Suspect]
     Active Substance: CLOZAPINE
     Dosage: 800 MG, QD
     Route: 048
     Dates: start: 20201207
  45. CLOZARIL [Suspect]
     Active Substance: CLOZAPINE
     Dosage: UNK
     Route: 048
     Dates: start: 20100823, end: 20100823
  46. CLOZARIL [Suspect]
     Active Substance: CLOZAPINE
     Dosage: UNK
     Route: 048
     Dates: start: 20100823
  47. CLOZARIL [Suspect]
     Active Substance: CLOZAPINE
     Dosage: UNK
     Route: 048
     Dates: start: 20100823
  48. CLOZARIL [Suspect]
     Active Substance: CLOZAPINE
     Dosage: UNK
     Route: 048
     Dates: start: 20200521, end: 2020
  49. CLOZARIL [Suspect]
     Active Substance: CLOZAPINE
     Dosage: UNK
     Route: 048
     Dates: start: 20200521, end: 2021
  50. CLOZARIL [Suspect]
     Active Substance: CLOZAPINE
     Dosage: UNK
     Route: 048
     Dates: start: 20200521
  51. CLOZARIL [Suspect]
     Active Substance: CLOZAPINE
     Dosage: UNK
     Route: 048
     Dates: end: 20191223
  52. CLOZARIL [Suspect]
     Active Substance: CLOZAPINE
     Dosage: UNK
     Route: 048
     Dates: end: 20220719
  53. CLOZARIL [Suspect]
     Active Substance: CLOZAPINE
     Dosage: UNK
     Route: 065
     Dates: start: 20191207, end: 20191223
  54. CLOZARIL [Suspect]
     Active Substance: CLOZAPINE
     Dosage: UNK
     Route: 065
     Dates: start: 20191209, end: 20191223
  55. CLOZARIL [Suspect]
     Active Substance: CLOZAPINE
     Dosage: UNK
     Route: 065
     Dates: start: 20201207
  56. CHLORPROMAZINE [Suspect]
     Active Substance: CHLORPROMAZINE
     Indication: Schizophrenia
     Dosage: 75 MG
     Route: 065
  57. CHLORPROMAZINE [Suspect]
     Active Substance: CHLORPROMAZINE
     Dosage: 75 MG
     Route: 065
  58. CHLORPROMAZINE [Suspect]
     Active Substance: CHLORPROMAZINE
     Dosage: 75 MG
     Route: 065
  59. CHLORPROMAZINE [Suspect]
     Active Substance: CHLORPROMAZINE
     Dosage: 75 MG
     Route: 065
  60. CHLORPROMAZINE [Suspect]
     Active Substance: CHLORPROMAZINE
     Dosage: 75 MG
     Route: 065
  61. CHLORPROMAZINE [Suspect]
     Active Substance: CHLORPROMAZINE
     Dosage: 75 MG
     Route: 065
  62. CHLORPROMAZINE [Suspect]
     Active Substance: CHLORPROMAZINE
     Dosage: 75 MG
     Route: 065
  63. CHLORPROMAZINE [Suspect]
     Active Substance: CHLORPROMAZINE
     Dosage: 75 MG
     Route: 065
  64. CHLORPROMAZINE [Suspect]
     Active Substance: CHLORPROMAZINE
     Dosage: 75 MG
     Route: 065
  65. CHLORPROMAZINE [Suspect]
     Active Substance: CHLORPROMAZINE
     Dosage: 75 MG
     Route: 065
  66. ZUCLOPENTHIXOL [Suspect]
     Active Substance: ZUCLOPENTHIXOL
     Indication: Schizophrenia
     Dosage: 300 MG, QW
     Route: 030
     Dates: start: 20091009
  67. ZUCLOPENTHIXOL [Suspect]
     Active Substance: ZUCLOPENTHIXOL
     Dosage: 300 MG, QW
     Route: 030
     Dates: start: 20091018
  68. ZUCLOPENTHIXOL [Suspect]
     Active Substance: ZUCLOPENTHIXOL
     Dosage: 300 MG, QW
     Route: 030
     Dates: start: 20091018
  69. ZUCLOPENTHIXOL [Suspect]
     Active Substance: ZUCLOPENTHIXOL
     Dosage: 300 MG, QD
     Route: 030
     Dates: start: 20091009
  70. ZUCLOPENTHIXOL [Suspect]
     Active Substance: ZUCLOPENTHIXOL
     Dosage: 400 MG, QW
     Route: 065
     Dates: start: 20030204, end: 20040217
  71. ZUCLOPENTHIXOL [Suspect]
     Active Substance: ZUCLOPENTHIXOL
     Dosage: 400 MG, QW
     Route: 065
     Dates: start: 20040217, end: 20040601
  72. ZUCLOPENTHIXOL [Suspect]
     Active Substance: ZUCLOPENTHIXOL
     Dosage: 400 MG, QW
     Route: 065
     Dates: start: 20041018, end: 20041018
  73. ZUCLOPENTHIXOL [Suspect]
     Active Substance: ZUCLOPENTHIXOL
     Dosage: 400 MG, QW
     Route: 065
     Dates: start: 20091018
  74. ZUCLOPENTHIXOL [Suspect]
     Active Substance: ZUCLOPENTHIXOL
     Dosage: 400 MG, QW
     Route: 065
     Dates: end: 20040601
  75. ZUCLOPENTHIXOL [Suspect]
     Active Substance: ZUCLOPENTHIXOL
     Dosage: 400 MG, BIW
     Route: 030
     Dates: start: 20091018
  76. ZUCLOPENTHIXOL [Suspect]
     Active Substance: ZUCLOPENTHIXOL
     Dosage: 400 MG, BIW
     Route: 065
     Dates: start: 20040601, end: 20041018
  77. ZUCLOPENTHIXOL [Suspect]
     Active Substance: ZUCLOPENTHIXOL
     Dosage: 400 MG, BIW
     Route: 065
     Dates: end: 20041018
  78. ZUCLOPENTHIXOL [Suspect]
     Active Substance: ZUCLOPENTHIXOL
     Dosage: 400 MG
     Route: 030
  79. ZUCLOPENTHIXOL [Suspect]
     Active Substance: ZUCLOPENTHIXOL
     Dosage: 400 MG
     Route: 065
     Dates: end: 20041018
  80. ZUCLOPENTHIXOL [Suspect]
     Active Substance: ZUCLOPENTHIXOL
     Dosage: 400 MG
     Route: 065
  81. ZUCLOPENTHIXOL [Suspect]
     Active Substance: ZUCLOPENTHIXOL
     Dosage: UNK
     Route: 065
  82. ZUCLOPENTHIXOL [Suspect]
     Active Substance: ZUCLOPENTHIXOL
     Dosage: UNK
     Route: 065
  83. ZUCLOPENTHIXOL [Suspect]
     Active Substance: ZUCLOPENTHIXOL
     Dosage: UNK
     Route: 065
  84. DOCETAXEL [Suspect]
     Active Substance: DOCETAXEL
     Dosage: 110 MG, Q3W CUMULATIVE DOSE: 324.98)/30 SEP 2015)
     Route: 042
     Dates: start: 20150930, end: 20151021
  85. DOCETAXEL [Suspect]
     Active Substance: DOCETAXEL
     Dosage: 220 MG
     Route: 065
  86. DOCETAXEL [Suspect]
     Active Substance: DOCETAXEL
     Indication: Breast cancer metastatic
     Dosage: UNK
     Route: 065
     Dates: start: 20151222
  87. HALOPERIDOL [Suspect]
     Active Substance: HALOPERIDOL
     Dosage: 10 MG, QD
     Route: 048
  88. HALOPERIDOL [Suspect]
     Active Substance: HALOPERIDOL
     Dosage: 10 MG, QD
     Route: 048
  89. HALOPERIDOL [Suspect]
     Active Substance: HALOPERIDOL
     Dosage: 10 MG, QD
     Route: 048
  90. HALOPERIDOL [Suspect]
     Active Substance: HALOPERIDOL
     Dosage: 10 MG, QD
     Route: 048
  91. HALOPERIDOL [Suspect]
     Active Substance: HALOPERIDOL
     Dosage: 10 MG, QD
     Route: 048
  92. HALOPERIDOL [Suspect]
     Active Substance: HALOPERIDOL
     Dosage: 10 MG, QD
     Route: 048
  93. HALOPERIDOL [Suspect]
     Active Substance: HALOPERIDOL
     Dosage: 10 MG, QD
     Route: 048
  94. HALOPERIDOL [Suspect]
     Active Substance: HALOPERIDOL
     Dosage: 10 MG, QD (5 MG, BID)
     Route: 048
  95. HALOPERIDOL [Suspect]
     Active Substance: HALOPERIDOL
     Dosage: 10 MG, BID
     Route: 048
  96. HALOPERIDOL [Suspect]
     Active Substance: HALOPERIDOL
     Dosage: 10 MG, BID
     Route: 048
  97. HALOPERIDOL [Suspect]
     Active Substance: HALOPERIDOL
     Dosage: 10 MG, BID
     Route: 048
  98. HALOPERIDOL [Suspect]
     Active Substance: HALOPERIDOL
     Dosage: 10 MG, BID
     Route: 065
  99. HALOPERIDOL [Suspect]
     Active Substance: HALOPERIDOL
     Dosage: 20 MG, QD (10 MG, BID)
     Route: 048
  100. HALOPERIDOL [Suspect]
     Active Substance: HALOPERIDOL
     Dosage: 20 MG, QD (10 MG, BID)
     Route: 048
  101. HALOPERIDOL [Suspect]
     Active Substance: HALOPERIDOL
     Dosage: 20 MG, QD (10 MG, BID)
     Route: 065
  102. HALOPERIDOL [Suspect]
     Active Substance: HALOPERIDOL
     Indication: Schizophrenia
     Dosage: 40 MG, QD
     Route: 048
  103. HALOPERIDOL [Suspect]
     Active Substance: HALOPERIDOL
     Dosage: 40 MG, QD
     Route: 048
  104. HALOPERIDOL [Suspect]
     Active Substance: HALOPERIDOL
     Dosage: 40 MG, QD
     Route: 048
  105. HALOPERIDOL [Suspect]
     Active Substance: HALOPERIDOL
     Dosage: 40 MG, QD (20 MG, BID)
     Route: 048
  106. HALOPERIDOL [Suspect]
     Active Substance: HALOPERIDOL
     Dosage: 5 MG, QD
     Route: 048
  107. HALOPERIDOL [Suspect]
     Active Substance: HALOPERIDOL
     Dosage: 5 MG, BID
     Route: 048
  108. HALOPERIDOL [Suspect]
     Active Substance: HALOPERIDOL
     Dosage: 5 MG, BID
     Route: 048
  109. HALOPERIDOL [Suspect]
     Active Substance: HALOPERIDOL
     Dosage: 5 MG, BID
     Route: 065
  110. LITHIUM [Suspect]
     Active Substance: LITHIUM
     Dosage: 1 G
     Route: 065
  111. LITHIUM [Suspect]
     Active Substance: LITHIUM
     Dosage: 1 G
     Route: 065
  112. LITHIUM [Suspect]
     Active Substance: LITHIUM
     Dosage: 1 G
     Route: 065
  113. LITHIUM [Suspect]
     Active Substance: LITHIUM
     Indication: Schizophrenia
     Dosage: 1 MG
     Route: 048
  114. LITHIUM [Suspect]
     Active Substance: LITHIUM
     Dosage: 1 MG
     Route: 048
  115. LITHIUM [Suspect]
     Active Substance: LITHIUM
     Dosage: 1 MG
     Route: 048
  116. LITHIUM [Suspect]
     Active Substance: LITHIUM
     Dosage: 2 G
     Route: 048
  117. LITHIUM [Suspect]
     Active Substance: LITHIUM
     Dosage: 2 G
     Route: 065
  118. LITHIUM [Suspect]
     Active Substance: LITHIUM
     Dosage: 6 MG, QD
     Route: 065
  119. LITHIUM [Suspect]
     Active Substance: LITHIUM
     Dosage: 6 MG, QD
     Route: 065
  120. LORAZEPAM [Suspect]
     Active Substance: LORAZEPAM
     Indication: Schizophrenia
     Dosage: 1 MG
     Route: 048
  121. LORAZEPAM [Suspect]
     Active Substance: LORAZEPAM
     Dosage: 1 MG
     Route: 048
  122. LORAZEPAM [Suspect]
     Active Substance: LORAZEPAM
     Dosage: 1 MG
     Route: 048
  123. LORAZEPAM [Suspect]
     Active Substance: LORAZEPAM
     Dosage: 1 MG
     Route: 048
  124. LORAZEPAM [Suspect]
     Active Substance: LORAZEPAM
     Dosage: 1 MG
     Route: 048
  125. LORAZEPAM [Suspect]
     Active Substance: LORAZEPAM
     Dosage: 1 MG
     Route: 048
  126. LORAZEPAM [Suspect]
     Active Substance: LORAZEPAM
     Dosage: 1 MG
     Route: 048
  127. LORAZEPAM [Suspect]
     Active Substance: LORAZEPAM
     Dosage: 1 MG
     Route: 048
  128. LORAZEPAM [Suspect]
     Active Substance: LORAZEPAM
     Dosage: 1 MG
     Route: 048
  129. LORAZEPAM [Suspect]
     Active Substance: LORAZEPAM
     Dosage: 1 MG
     Route: 048
  130. LORAZEPAM [Suspect]
     Active Substance: LORAZEPAM
     Dosage: UNK
     Route: 048
  131. OLANZAPINE [Suspect]
     Active Substance: OLANZAPINE
     Dosage: 1 MG
     Route: 048
  132. OLANZAPINE [Suspect]
     Active Substance: OLANZAPINE
     Dosage: 1 MG
     Route: 048
  133. OLANZAPINE [Suspect]
     Active Substance: OLANZAPINE
     Indication: Schizophrenia
     Dosage: 10 MG
     Route: 065
  134. OLANZAPINE [Suspect]
     Active Substance: OLANZAPINE
     Dosage: 10 MG
     Route: 065
  135. OLANZAPINE [Suspect]
     Active Substance: OLANZAPINE
     Dosage: 15 MG
     Route: 065
     Dates: start: 20040217
  136. OLANZAPINE [Suspect]
     Active Substance: OLANZAPINE
     Dosage: 15 MG
     Route: 065
     Dates: start: 20060704
  137. OLANZAPINE [Suspect]
     Active Substance: OLANZAPINE
     Dosage: 2.5 MG, QD
     Route: 065
     Dates: start: 20080823
  138. OLANZAPINE [Suspect]
     Active Substance: OLANZAPINE
     Dosage: 2.5 MG
     Route: 065
  139. OLANZAPINE [Suspect]
     Active Substance: OLANZAPINE
     Dosage: UNK
     Route: 065
  140. OLANZAPINE [Suspect]
     Active Substance: OLANZAPINE
     Dosage: UNK
     Route: 065
  141. PACLITAXEL [Suspect]
     Active Substance: PACLITAXEL
     Dosage: 120 MG, QW (CUMULATIVE DOSE: 377.142)
     Route: 042
     Dates: start: 20151223, end: 20151223
  142. PACLITAXEL [Suspect]
     Active Substance: PACLITAXEL
     Indication: Breast cancer metastatic
     Dosage: 120 MG, QW, WEEKLY (1/W)
     Route: 065
     Dates: start: 20151111, end: 20151222
  143. PACLITAXEL [Suspect]
     Active Substance: PACLITAXEL
     Dosage: 150 MG, QW (CUMULATIVE DOSE: 428.57 MG)
     Route: 042
  144. PACLITAXEL [Suspect]
     Active Substance: PACLITAXEL
     Dosage: UNK
     Route: 065
     Dates: start: 20151111, end: 20151222
  145. PERTUZUMAB [Suspect]
     Active Substance: PERTUZUMAB
     Dosage: 2 IU, QW
     Route: 042
  146. PERTUZUMAB [Suspect]
     Active Substance: PERTUZUMAB
     Indication: Breast cancer metastatic
     Dosage: 420 MG, Q3W
     Route: 042
  147. PERTUZUMAB [Suspect]
     Active Substance: PERTUZUMAB
     Dosage: 420 MG, Q3W
     Route: 042
     Dates: start: 20151021
  148. PERTUZUMAB [Suspect]
     Active Substance: PERTUZUMAB
     Dosage: 840 MG, Q3W (CUMULATIVE DOSE: 2481.6667 MG)
     Route: 042
     Dates: start: 20150930
  149. RISPERIDONE [Suspect]
     Active Substance: RISPERIDONE
     Dosage: 1 G
     Route: 065
  150. RISPERIDONE [Suspect]
     Active Substance: RISPERIDONE
     Indication: Schizophrenia
     Dosage: 1 MG, QD
     Route: 065
  151. RISPERIDONE [Suspect]
     Active Substance: RISPERIDONE
     Dosage: 1 MG, QD
     Route: 065
  152. RISPERIDONE [Suspect]
     Active Substance: RISPERIDONE
     Dosage: 2 MG, BID
     Route: 065
  153. RISPERIDONE [Suspect]
     Active Substance: RISPERIDONE
     Dosage: 2 MG
     Route: 065
  154. RISPERIDONE [Suspect]
     Active Substance: RISPERIDONE
     Dosage: 3 MG, BID
     Route: 065
  155. RISPERIDONE [Suspect]
     Active Substance: RISPERIDONE
     Dosage: 3 MG, BID
     Route: 065
  156. RISPERIDONE [Suspect]
     Active Substance: RISPERIDONE
     Dosage: 4 MG, QD
     Route: 065
  157. RISPERIDONE [Suspect]
     Active Substance: RISPERIDONE
     Dosage: 4 MG, QD
     Route: 065
  158. RISPERIDONE [Suspect]
     Active Substance: RISPERIDONE
     Dosage: 4 MG, QD (2MG BID)
     Route: 065
  159. RISPERIDONE [Suspect]
     Active Substance: RISPERIDONE
     Dosage: 6 MG, QD
     Route: 065
  160. RISPERIDONE [Suspect]
     Active Substance: RISPERIDONE
     Dosage: 6 MG, QD (3MG BID)
     Route: 065
  161. RISPERDAL [Suspect]
     Active Substance: RISPERIDONE
     Dosage: 1 MG, QD
     Route: 065
  162. RISPERDAL [Suspect]
     Active Substance: RISPERIDONE
     Dosage: 1 MG, QD
     Route: 065
  163. RISPERDAL [Suspect]
     Active Substance: RISPERIDONE
     Dosage: 1 MG, QD
     Route: 065
  164. RISPERDAL [Suspect]
     Active Substance: RISPERIDONE
     Dosage: 1 MG, QD
     Route: 065
  165. RISPERDAL [Suspect]
     Active Substance: RISPERIDONE
     Dosage: 3 MG, BID
     Route: 065
  166. RISPERDAL [Suspect]
     Active Substance: RISPERIDONE
     Dosage: 4 MG, QD
     Route: 065
  167. RISPERDAL [Suspect]
     Active Substance: RISPERIDONE
     Dosage: 4 MG, QD
     Route: 065
  168. RISPERDAL [Suspect]
     Active Substance: RISPERIDONE
     Dosage: 4 MG, QD
     Route: 065
  169. RISPERDAL [Suspect]
     Active Substance: RISPERIDONE
     Dosage: 4 MG, QD
     Route: 065
  170. RISPERDAL [Suspect]
     Active Substance: RISPERIDONE
     Dosage: 4 MG, QD (2MG, BID)
     Route: 065
  171. RISPERDAL [Suspect]
     Active Substance: RISPERIDONE
     Indication: Schizophrenia
     Dosage: 6 MG, QD
     Route: 065
  172. RISPERDAL [Suspect]
     Active Substance: RISPERIDONE
     Dosage: 6 MG, QD
     Route: 065
  173. RISPERDAL [Suspect]
     Active Substance: RISPERIDONE
     Dosage: 6 MG, QD
     Route: 065
  174. RISPERDAL [Suspect]
     Active Substance: RISPERIDONE
     Dosage: 6 MG, QD (3 MG, BID)
     Route: 065
  175. TRASTUZUMAB [Suspect]
     Active Substance: TRASTUZUMAB
     Dosage: 1218 MG
     Route: 065
     Dates: start: 20150930
  176. TRASTUZUMAB [Suspect]
     Active Substance: TRASTUZUMAB
     Dosage: 1218 MG
     Route: 065
     Dates: start: 20151130
  177. TRASTUZUMAB [Suspect]
     Active Substance: TRASTUZUMAB
     Dosage: 1827 MG
     Route: 065
     Dates: start: 20150930
  178. TRASTUZUMAB [Suspect]
     Active Substance: TRASTUZUMAB
     Dosage: 420 MG, Q3W (CUMULATIVE DOSE: 820.83 MG)
     Route: 065
  179. TRASTUZUMAB [Suspect]
     Active Substance: TRASTUZUMAB
     Dosage: 609 MG, BIW (1799.20 MG)
     Route: 042
     Dates: start: 20150930
  180. TRASTUZUMAB [Suspect]
     Active Substance: TRASTUZUMAB
     Dosage: 609 MG, Q3W (1799.20 MG)
     Route: 042
     Dates: start: 20150930
  181. TRASTUZUMAB [Suspect]
     Active Substance: TRASTUZUMAB
     Indication: Breast cancer metastatic
     Dosage: 609 MG, 2/W
     Route: 042
     Dates: start: 20150930
  182. ZUCLOPENTHIXOL [Suspect]
     Active Substance: ZUCLOPENTHIXOL
     Indication: Product used for unknown indication
     Dosage: 300 MG, QW
     Route: 048
     Dates: start: 20091018
  183. ZUCLOPENTHIXOL [Suspect]
     Active Substance: ZUCLOPENTHIXOL
     Dosage: 300 MG, QW
     Route: 065
  184. ZUCLOPENTHIXOL [Suspect]
     Active Substance: ZUCLOPENTHIXOL
     Dosage: 400 MG, BIW CYCLICAL (400 MG, BIWEEKLY)
     Route: 065
     Dates: start: 20040217, end: 20040601
  185. CALCIUM\CHOLECALCIFEROL [Concomitant]
     Active Substance: CALCIUM\CHOLECALCIFEROL
     Indication: Product used for unknown indication
     Dosage: 2 DOSAGE FORM, QD
     Route: 065
     Dates: start: 20091018
  186. CHLORPHENIRAMINE MALEATE [Concomitant]
     Active Substance: CHLORPHENIRAMINE MALEATE
     Indication: Product used for unknown indication
     Dosage: 10 MG, QW (CUMULATIVE DOSE 28.57)
     Route: 058
     Dates: start: 20151111
  187. AMOXICILLIN\CLAVULANATE POTASSIUM [Concomitant]
     Active Substance: AMOXICILLIN\CLAVULANATE POTASSIUM
     Dosage: 2500 MG, QD (625 MG, QID)
     Route: 048
     Dates: start: 20151122
  188. AMOXICILLIN\CLAVULANATE POTASSIUM [Concomitant]
     Active Substance: AMOXICILLIN\CLAVULANATE POTASSIUM
     Dosage: 2500 MG, QD (625 MG, QID)
     Route: 065
     Dates: start: 20151122
  189. AMOXICILLIN\CLAVULANATE POTASSIUM [Concomitant]
     Active Substance: AMOXICILLIN\CLAVULANATE POTASSIUM
     Indication: Product used for unknown indication
     Dosage: 625 MG (120 MG, OTHER (EVERY 9 WEEKS))
     Route: 065
     Dates: start: 20151111
  190. AMOXICILLIN\CLAVULANATE POTASSIUM [Concomitant]
     Active Substance: AMOXICILLIN\CLAVULANATE POTASSIUM
     Indication: Febrile neutropenia
     Dosage: 625 MG (EVERY 0.33 DAYS, CUMULATIVE DOSE:16875)
     Route: 048
     Dates: start: 20151122, end: 20151125
  191. CHOLECALCIFEROL [Concomitant]
     Active Substance: CHOLECALCIFEROL
     Indication: Product used for unknown indication
     Dosage: 2 DOSAGE FORM, QD
     Route: 048
  192. DENOSUMAB [Concomitant]
     Active Substance: DENOSUMAB
     Indication: Gastrooesophageal reflux disease
     Dosage: 120 MG, QD (625 MG, QID)
     Route: 065
  193. DENOSUMAB [Concomitant]
     Active Substance: DENOSUMAB
     Indication: Metastases to bone
     Dosage: 120 MG, EVERY 9 WEEKS/30 SEP 2015120 MG,(CUMULATIVE DOSE: 118.174)
     Route: 058
     Dates: start: 20150930
  194. DULOXETINE [Concomitant]
     Active Substance: DULOXETINE
     Indication: Product used for unknown indication
     Dosage: UNK
     Route: 065
  195. GENTAMICIN [Concomitant]
     Active Substance: GENTAMICIN
     Indication: Febrile neutropenia
     Dosage: UNK
     Route: 042
     Dates: start: 20151121, end: 201511
  196. LEVOFLOXACIN [Concomitant]
     Active Substance: LEVOFLOXACIN
     Indication: Febrile neutropenia
     Dosage: 500 MG, QD (CUMULATIVE DOSE: 3000)
     Route: 048
     Dates: start: 20151125
  197. MIRTAZAPINE [Concomitant]
     Active Substance: MIRTAZAPINE
     Indication: Product used for unknown indication
     Dosage: 15 MG, QD
     Route: 065
     Dates: start: 201510
  198. MORPHINE [Concomitant]
     Active Substance: MORPHINE
     Indication: Pain
     Dosage: 15 MG, QD
     Route: 065
     Dates: start: 201510
  199. MORPHINE [Concomitant]
     Active Substance: MORPHINE
     Dosage: 30 MG (EVERY 0.5 DAY)
     Route: 048
     Dates: start: 201509
  200. MORPHINE [Concomitant]
     Active Substance: MORPHINE
     Dosage: 60 MG, QD (30 MG, BID)
     Route: 048
     Dates: start: 201509
  201. MORPHINE SULFATE [Concomitant]
     Active Substance: MORPHINE SULFATE
     Indication: Product used for unknown indication
     Dosage: 10 MG
     Route: 065
     Dates: start: 201509
  202. ACETAMINOPHEN [Concomitant]
     Active Substance: ACETAMINOPHEN
     Dosage: 15 MG, QD
     Route: 065
  203. ACETAMINOPHEN [Concomitant]
     Active Substance: ACETAMINOPHEN
     Indication: Pain
     Dosage: 500 MG (DOSE FORM 245)
     Route: 048
     Dates: start: 20150127
  204. PREGABALIN [Concomitant]
     Active Substance: PREGABALIN
     Dosage: 150 MG, QD (75 MG, BID)
     Route: 048
     Dates: start: 201509
  205. PREGABALIN [Concomitant]
     Active Substance: PREGABALIN
     Indication: Product used for unknown indication
     Dosage: 75 MG (EVERY 0.5 DAY)
     Route: 048
     Dates: start: 201509
  206. RANITIDINE [Concomitant]
     Active Substance: RANITIDINE
     Dosage: 150 MG, QW (50 MG, QWK)
     Route: 058
  207. RANITIDINE [Concomitant]
     Active Substance: RANITIDINE
     Dosage: 50 MG, QW
     Route: 058
     Dates: start: 20151111
  208. RANITIDINE [Concomitant]
     Active Substance: RANITIDINE
     Dosage: 50 MG, QW (CUMULATIVE DOSE: 142.857)
     Route: 058
     Dates: start: 20151111
  209. RANITIDINE [Concomitant]
     Active Substance: RANITIDINE
     Indication: Gastrooesophageal reflux disease
     Dosage: 75 MG (75 MG, WEEKLY (1/W))
     Route: 058
  210. TAZOBACTAM SODIUM [Concomitant]
     Active Substance: TAZOBACTAM SODIUM
     Indication: Febrile neutropenia
     Dosage: UNK
     Route: 065
     Dates: start: 20151121
  211. PIPERACILLIN SODIUM\TAZOBACTAM SODIUM [Concomitant]
     Active Substance: PIPERACILLIN SODIUM\TAZOBACTAM SODIUM
     Indication: Febrile neutropenia
     Dosage: UNK
     Route: 065
     Dates: start: 20151121

REACTIONS (10)
  - COVID-19 [Fatal]
  - Disease progression [Fatal]
  - Extrapyramidal disorder [Fatal]
  - Lymphocyte count abnormal [Fatal]
  - Off label use [Fatal]
  - Overdose [Fatal]
  - Off label use [Fatal]
  - SARS-CoV-2 test positive [Fatal]
  - Seizure [Fatal]
  - Fatigue [Fatal]

NARRATIVE: CASE EVENT DATE: 20190101
